FAERS Safety Report 8252731-3 (Version None)
Quarter: 2012Q2

REPORT INFORMATION
  Report Type: 
  Country: None (occurrence: None)
  Receive Date: 20120402
  Receipt Date: 20111206
  Transmission Date: 20120825
  Serious: No
  Sender: FDA-Public Use
  Company Number: US-ABBOTT-11P-163-0881398-00

PATIENT
  Sex: Male
  Weight: 83.082 kg

DRUGS (6)
  1. ETODOLAC [Concomitant]
     Indication: PLANTAR FASCIITIS
  2. ANDROGEL [Suspect]
     Route: 061
     Dates: start: 20110301
  3. SIMVASTATIN [Concomitant]
     Indication: BLOOD CHOLESTEROL
  4. ANDROGEL [Suspect]
     Indication: BLOOD TESTOSTERONE DECREASED
     Route: 061
     Dates: start: 20090101, end: 20110201
  5. METOPROLOL TARTRATE [Concomitant]
     Indication: HYPERTENSION
  6. ETODOLAC [Concomitant]
     Indication: ARTHRITIS

REACTIONS (3)
  - APPLICATION SITE RASH [None]
  - PROSTATIC SPECIFIC ANTIGEN INCREASED [None]
  - BLOOD TESTOSTERONE ABNORMAL [None]
